FAERS Safety Report 4821840-0 (Version None)
Quarter: 2005Q4

REPORT INFORMATION
  Report Type: 
  Country: None (occurrence: None)
  Receive Date: 20051107
  Receipt Date: 20050207
  Transmission Date: 20060501
  Serious: Yes (Other)
  Sender: FDA-Public Use
  Company Number: PHEH2005US01781

PATIENT
  Age: 56 Year
  Sex: Male

DRUGS (9)
  1. ZOLEDRONIC ACID [Suspect]
     Indication: METASTASES TO BONE
     Dosage: UNK,UNK
  2. VINCRISTINE [Concomitant]
  3. DOXORUBICIN [Concomitant]
  4. DEXAMETHASONE [Concomitant]
  5. ANABOLIC STEROIDS [Concomitant]
  6. THALIDOMIDE [Concomitant]
  7. CYCLOPHOSPHAMIDE [Concomitant]
  8. CC 5013 [Concomitant]
  9. AREDIA [Suspect]
     Indication: METASTASES TO BONE
     Route: 042

REACTIONS (5)
  - HYPERBARIC OXYGEN THERAPY [None]
  - INFECTION [None]
  - OSTEONECROSIS [None]
  - SEQUESTRECTOMY [None]
  - TOOTH EXTRACTION [None]
